FAERS Safety Report 9466530 (Version 1)
Quarter: 2013Q3

REPORT INFORMATION
  Report Type: Spontaneous
  Country: US (occurrence: US)
  Receive Date: 20130820
  Receipt Date: 20130820
  Transmission Date: 20140515
  Serious: Yes (Other)
  Sender: FDA-Public Use
  Company Number: US-JNJFOC-20130808050

PATIENT
  Sex: Male

DRUGS (7)
  1. INVEGA SUSTENNA [Suspect]
     Indication: SCHIZOPHRENIA
     Route: 030
     Dates: start: 20130726
  2. INVEGA SUSTENNA [Suspect]
     Indication: SCHIZOPHRENIA
     Route: 030
     Dates: start: 20130626, end: 20130626
  3. INVEGA SUSTENNA [Suspect]
     Indication: SCHIZOPHRENIA
     Route: 030
     Dates: start: 20130619, end: 20130619
  4. RISPERDAL [Suspect]
     Indication: SCHIZOPHRENIA
     Route: 065
  5. CELEXA [Concomitant]
     Route: 065
  6. LITHIUM [Concomitant]
     Route: 065
  7. COGENTIN [Concomitant]
     Dosage: 5 MG TABLET AS NEEDED
     Route: 048

REACTIONS (1)
  - Weight increased [Not Recovered/Not Resolved]
